FAERS Safety Report 16589918 (Version 1)
Quarter: 2019Q3

REPORT INFORMATION
  Report Type: Report from Study
  Country: None (occurrence: US)
  Receive Date: 20190718
  Receipt Date: 20190718
  Transmission Date: 20191004
  Serious: Yes (Other)
  Sender: FDA-Public Use
  Company Number: US-BIOVITRUM-2019US1857

PATIENT
  Sex: Female

DRUGS (2)
  1. KINERET [Suspect]
     Active Substance: ANAKINRA
     Indication: AUTOINFLAMMATORY DISEASE
     Route: 058
     Dates: start: 201903
  2. KINERET [Suspect]
     Active Substance: ANAKINRA
     Indication: PYREXIA

REACTIONS (2)
  - Blood lactic acid increased [Unknown]
  - Off label use [Not Recovered/Not Resolved]
